FAERS Safety Report 23771520 (Version 2)
Quarter: 2025Q2

REPORT INFORMATION
  Report Type: Spontaneous
  Country: FR (occurrence: FR)
  Receive Date: 20240423
  Receipt Date: 20250402
  Transmission Date: 20250717
  Serious: Yes (Hospitalization)
  Sender: BOEHRINGER INGELHEIM
  Company Number: None

PATIENT
  Age: 95 Year
  Sex: Female
  Weight: 65 kg

DRUGS (11)
  1. JARDIANCE [Suspect]
     Active Substance: EMPAGLIFLOZIN
     Indication: Type 2 diabetes mellitus
     Dates: start: 20240202, end: 20240402
  2. ROSUVASTATIN CALCIUM [Suspect]
     Active Substance: ROSUVASTATIN CALCIUM
     Indication: Hypercholesterolaemia
     Dates: start: 20240202, end: 20240402
  3. ROSUVASTATIN CALCIUM [Suspect]
     Active Substance: ROSUVASTATIN CALCIUM
     Indication: Hypercholesterolaemia
     Dates: start: 20231202, end: 20240202
  4. ROSUVASTATIN CALCIUM [Suspect]
     Active Substance: ROSUVASTATIN CALCIUM
     Dates: start: 20240202, end: 20240402
  5. ELIQUIS [Concomitant]
     Active Substance: APIXABAN
     Dates: start: 20240202
  6. AMLODIPINE [Concomitant]
     Active Substance: AMLODIPINE BESYLATE
  7. HUMALOG [Concomitant]
     Active Substance: INSULIN LISPRO
  8. INSULIN GLARGINE [Concomitant]
     Active Substance: INSULIN GLARGINE
  9. LEVOTHYROXINE [Concomitant]
     Active Substance: LEVOTHYROXINE
  10. PANTOPRAZOLE [Concomitant]
     Active Substance: PANTOPRAZOLE
  11. LYRICA [Concomitant]
     Active Substance: PREGABALIN
     Indication: Diabetic neuropathy

REACTIONS (1)
  - Dermo-hypodermitis [Recovering/Resolving]

NARRATIVE: CASE EVENT DATE: 20240301
